FAERS Safety Report 25499474 (Version 1)
Quarter: 2025Q2

REPORT INFORMATION
  Report Type: Spontaneous
  Country: US (occurrence: None)
  Receive Date: 20250627
  Receipt Date: 20250627
  Transmission Date: 20250716
  Serious: Yes (Other)
  Sender: FDA-CTU
  Company Number: None

PATIENT
  Age: 17 Year
  Sex: Male
  Weight: 81 kg

DRUGS (2)
  1. OCTINOXATE\OCTISALATE\ZINC OXIDE [Suspect]
     Active Substance: OCTINOXATE\OCTISALATE\ZINC OXIDE
     Indication: Sunburn
     Route: 061
  2. OCTINOXATE\OCTISALATE\ZINC OXIDE [Suspect]
     Active Substance: OCTINOXATE\OCTISALATE\ZINC OXIDE
     Indication: Prophylaxis

REACTIONS (2)
  - Expired product administered [None]
  - Drug ineffective [None]
